FAERS Safety Report 9321435 (Version 3)
Quarter: 2014Q3

REPORT INFORMATION
  Report Type: Spontaneous
  Country: DK (occurrence: DK)
  Receive Date: 20130531
  Receipt Date: 20140826
  Transmission Date: 20150326
  Serious: Yes (Hospitalization)
  Sender: FDA-Public Use
  Company Number: DK-PFIZER INC-2013164506

PATIENT
  Age: 38 Year
  Sex: Female
  Weight: 69 kg

DRUGS (2)
  1. METHYLDOPA. [Concomitant]
     Active Substance: METHYLDOPA
     Indication: HYPERTENSION
     Dosage: 250 MG, 4X/DAY
     Route: 048
  2. CYTOTEC [Suspect]
     Active Substance: MISOPROSTOL
     Dosage: 25 UG, SINGLE
     Route: 067
     Dates: start: 20130207, end: 20130207

REACTIONS (4)
  - Off label use [Recovered/Resolved]
  - Postpartum haemorrhage [Recovered/Resolved]
  - Arrested labour [Recovered/Resolved]
  - Precipitate labour [Recovered/Resolved]

NARRATIVE: CASE EVENT DATE: 20130207
